FAERS Safety Report 17256233 (Version 1)
Quarter: 2020Q3

REPORT INFORMATION
  Report Type: Report from Study
  Country: IT (occurrence: IT)
  Receive Date: 20200110
  Receipt Date: 20200110
  Transmission Date: 20201104
  Serious: Yes (Other)
  Sender: FDA-Public Use
  Company Number: IT-TEVA-2019-IT-1156975

PATIENT
  Age: 46 Year
  Sex: Female

DRUGS (5)
  1. SERACTIL 400 MG COMPRESSE RIVESTITE CON FILM [Suspect]
     Active Substance: DEXIBUPROFEN
     Indication: PAIN
     Dosage: 8 GRAM
     Route: 048
     Dates: start: 20191126, end: 20191126
  2. ETORICOXIB. [Suspect]
     Active Substance: ETORICOXIB
     Indication: INFLAMMATION
     Route: 048
     Dates: start: 20191126, end: 20191126
  3. CIPROFLOXACIN. [Suspect]
     Active Substance: CIPROFLOXACIN
     Indication: INFECTION
     Dates: start: 20191126, end: 20191126
  4. ESCITALOPRAM OXALATE. [Suspect]
     Active Substance: ESCITALOPRAM OXALATE
     Indication: DEPRESSION
     Dosage: 70 MILLIGRAM
     Route: 048
     Dates: start: 20191126, end: 20191126
  5. TACHIDOL 500 MG/30 MG COMPRESSE RIVESTITE CON FILM [Suspect]
     Active Substance: ACETAMINOPHEN\CODEINE PHOSPHATE
     Indication: ANALGESIC THERAPY
     Dosage: 8 GRAM
     Route: 048
     Dates: start: 20191126, end: 20191126

REACTIONS (2)
  - Drug abuse [Recovering/Resolving]
  - Sopor [Recovering/Resolving]

NARRATIVE: CASE EVENT DATE: 20191126
